FAERS Safety Report 9028579 (Version 3)
Quarter: 2013Q1

REPORT INFORMATION
  Report Type: Spontaneous
  Country: SK (occurrence: SK)
  Receive Date: 20130124
  Receipt Date: 20130305
  Transmission Date: 20140127
  Serious: Yes (Hospitalization)
  Sender: FDA-Public Use
  Company Number: SK-GLAXOSMITHKLINE-B0855519A

PATIENT
  Sex: Male

DRUGS (8)
  1. TROBALT [Suspect]
     Indication: EPILEPSY
     Dosage: 1050MG PER DAY
     Route: 048
     Dates: start: 20120404
  2. VIMPAT [Concomitant]
     Dosage: 200MG TWICE PER DAY
  3. VALPROIC ACID [Concomitant]
  4. LEVETIRACETAM [Concomitant]
  5. DEPAKINE CHRONO [Concomitant]
     Dosage: 1500MG PER DAY
  6. FLAVOBION [Concomitant]
  7. AKINETON [Concomitant]
  8. ZIPRASIDONE [Concomitant]

REACTIONS (5)
  - Urinary retention [Recovered/Resolved]
  - Epilepsy [Recovered/Resolved with Sequelae]
  - Hemiparesis [Recovered/Resolved with Sequelae]
  - Dysarthria [Recovered/Resolved with Sequelae]
  - Somnolence [Recovered/Resolved]
